FAERS Safety Report 6127699-6 (Version None)
Quarter: 2009Q1

REPORT INFORMATION
  Report Type: 
  Country: None (occurrence: None)
  Receive Date: 20090323
  Receipt Date: 20090218
  Transmission Date: 20090719
  Serious: No
  Sender: FDA-Public Use
  Company Number: US-BAYER-200840894NA

PATIENT
  Age: 27 Year
  Sex: Female

DRUGS (1)
  1. YAZ [Suspect]
     Indication: OVARIAN CYST
     Route: 048
     Dates: start: 20081124, end: 20081223

REACTIONS (11)
  - ANXIETY [None]
  - BREAST TENDERNESS [None]
  - HEADACHE [None]
  - HYPOAESTHESIA [None]
  - MUSCLE TWITCHING [None]
  - NERVOUSNESS [None]
  - NO ADVERSE EVENT [None]
  - PREMENSTRUAL SYNDROME [None]
  - RASH MACULAR [None]
  - TREMOR [None]
  - VULVOVAGINAL MYCOTIC INFECTION [None]
